FAERS Safety Report 5017526-2 (Version None)
Quarter: 2006Q2

REPORT INFORMATION
  Report Type: 
  Country: None (occurrence: None)
  Receive Date: 20060601
  Receipt Date: 20060601
  Transmission Date: 20061013
  Serious: Yes (Hospitalization)
  Sender: FDA-Public Use
  Company Number: None

PATIENT
  Age: 68 Year
  Sex: Male
  Weight: 69 kg

DRUGS (9)
  1. LITHIUM CARBONATE [Suspect]
     Indication: BIPOLAR DISORDER
     Dosage: 750 MG QHS
  2. ASPIRIN [Concomitant]
  3. GATIFLOXACIN IN D5W [Concomitant]
  4. OLANZAPINE [Concomitant]
  5. OMEPRAZOLE [Concomitant]
  6. GUAIFENESIN WITH CODEINE SYRUP [Concomitant]
  7. SENNOSIDES [Concomitant]
  8. MAALOX FAST BLOCKER [Concomitant]
  9. FORMOTEROL [Concomitant]

REACTIONS (5)
  - DEHYDRATION [None]
  - DIABETES INSIPIDUS [None]
  - HYPERNATRAEMIA [None]
  - MENTAL STATUS CHANGES [None]
  - PNEUMONIA [None]
